FAERS Safety Report 24578124 (Version 1)
Quarter: 2024Q4

REPORT INFORMATION
  Report Type: Spontaneous
  Country: GB (occurrence: GB)
  Receive Date: 20241104
  Receipt Date: 20241104
  Transmission Date: 20250115
  Serious: Yes (Other)
  Sender: MERCK
  Company Number: GB-009507513-2411GBR000685

PATIENT
  Age: 56 Year
  Sex: Female

DRUGS (2)
  1. PEMBROLIZUMAB [Suspect]
     Active Substance: PEMBROLIZUMAB
     Indication: Renal cancer metastatic
  2. LENVATINIB MESYLATE [Suspect]
     Active Substance: LENVATINIB MESYLATE
     Indication: Renal cancer metastatic
     Route: 048

REACTIONS (2)
  - Paralysis [Unknown]
  - Polyneuropathy [Unknown]
